FAERS Safety Report 7795671-6 (Version None)
Quarter: 2011Q4

REPORT INFORMATION
  Report Type: 
  Country: None (occurrence: None)
  Receive Date: 20111004
  Receipt Date: 20110928
  Transmission Date: 20120403
  Serious: Yes (Hospitalization)
  Sender: FDA-Public Use
  Company Number: JP-GLAXOSMITHKLINE-B0751673A

PATIENT
  Age: 48 Year
  Sex: Female

DRUGS (10)
  1. LAMICTAL [Suspect]
     Dosage: 50MG PER DAY
     Route: 048
     Dates: start: 20110816, end: 20110909
  2. ALPRAZOLAM [Concomitant]
     Indication: ANXIETY
     Dosage: 1IUAX PER DAY
     Route: 048
  3. ABILIFY [Concomitant]
     Indication: DEPRESSION
     Dosage: 3MG PER DAY
     Route: 048
  4. EURODIN [Concomitant]
     Indication: INSOMNIA
     Dosage: 1.5IUAX PER DAY
     Route: 048
  5. ZOLOFT [Concomitant]
     Indication: ANXIETY
     Dosage: 100MG PER DAY
     Route: 048
  6. ETICALM [Concomitant]
     Indication: INSOMNIA
     Dosage: 3MG PER DAY
     Route: 048
  7. MINZAIN [Concomitant]
     Indication: INSOMNIA
     Dosage: 2IUAX PER DAY
     Route: 048
  8. LAMICTAL [Suspect]
     Indication: BIPOLAR DISORDER
     Route: 048
     Dates: end: 20110815
  9. DIAZEPAM [Concomitant]
     Dosage: 5MG PER DAY
     Route: 048
  10. MILNACIPRAN HYDROCHLORIDE [Concomitant]
     Indication: DEPRESSION
     Dosage: 100MG PER DAY
     Route: 048

REACTIONS (3)
  - APHTHOUS STOMATITIS [None]
  - PHARYNGEAL OEDEMA [None]
  - BLISTER [None]
